FAERS Safety Report 8156573-9 (Version None)
Quarter: 2012Q1

REPORT INFORMATION
  Report Type: 
  Country: None (occurrence: None)
  Receive Date: 20120216
  Receipt Date: 20120201
  Transmission Date: 20120608
  Serious: Yes (Hospitalization)
  Sender: FDA-Public Use
  Company Number: US-2011-10249

PATIENT
  Sex: Male

DRUGS (12)
  1. LANTUS [Concomitant]
  2. ACYCLOVIR [Concomitant]
  3. BORTEZOMIB [Concomitant]
  4. BENICAR (BENICAR HYDROCHLOROTHIAZIDE) [Concomitant]
  5. OXYCODONE HCL [Concomitant]
  6. PROTONIX [Concomitant]
  7. ZOFRAN [Concomitant]
  8. AVELOX ABC (MOXIFLOXACIN HYDROCHLORIDE) [Concomitant]
  9. BUSULFAN [Suspect]
     Indication: STEM CELL TRANSPLANT
     Dosage: 64.2 MG MILLIGRAM(S), DAILY DOSE, INTRAVENOUS, 300 MG MILLIGRAM(S), DAILY DOSE, INTRAVENOUS
     Route: 042
     Dates: start: 20110406, end: 20110409
  10. BUSULFAN [Suspect]
     Indication: STEM CELL TRANSPLANT
     Dosage: 64.2 MG MILLIGRAM(S), DAILY DOSE, INTRAVENOUS, 300 MG MILLIGRAM(S), DAILY DOSE, INTRAVENOUS
     Route: 042
     Dates: start: 20110330, end: 20110330
  11. LYRICA [Concomitant]
  12. NEURONTIN [Concomitant]

REACTIONS (5)
  - TINEA VERSICOLOUR [None]
  - DIARRHOEA [None]
  - ASTHENIA [None]
  - PYREXIA [None]
  - MUCOSAL INFLAMMATION [None]
